FAERS Safety Report 6463076-6 (Version None)
Quarter: 2009Q4

REPORT INFORMATION
  Report Type: 
  Country: None (occurrence: None)
  Receive Date: 20091130
  Receipt Date: 20090427
  Transmission Date: 20100525
  Serious: Yes (Other)
  Sender: FDA-Public Use
  Company Number: US-AMGEN-QUU343204

PATIENT
  Sex: Female

DRUGS (2)
  1. ENBREL [Suspect]
     Indication: JUVENILE ARTHRITIS
     Route: 058
     Dates: start: 20080901
  2. RIDAURA [Concomitant]

REACTIONS (8)
  - CANDIDIASIS [None]
  - FATIGUE [None]
  - FOLLICULITIS [None]
  - INJECTION SITE RASH [None]
  - NASOPHARYNGITIS [None]
  - OROPHARYNGEAL PAIN [None]
  - STAPHYLOCOCCAL INFECTION [None]
  - VIRAL SKIN INFECTION [None]
